FAERS Safety Report 22349670 (Version 3)
Quarter: 2025Q3

REPORT INFORMATION
  Report Type: Report from Study
  Country: US (occurrence: US)
  Receive Date: 20230522
  Receipt Date: 20250814
  Transmission Date: 20251020
  Serious: Yes (Other)
  Sender: TAKEDA
  Company Number: US-TAKEDA-US202000769

PATIENT
  Age: 46 Year
  Sex: Female

DRUGS (3)
  1. HUMAN IMMUNOGLOBULIN G [Suspect]
     Active Substance: HUMAN IMMUNOGLOBULIN G
     Indication: Primary immunodeficiency syndrome
     Dosage: 10 GRAM, 1/WEEK
  2. HUMAN IMMUNOGLOBULIN G [Suspect]
     Active Substance: HUMAN IMMUNOGLOBULIN G
     Indication: Immunodeficiency common variable
     Dosage: 14 GRAM, 1/WEEK
  3. HUMAN IMMUNOGLOBULIN G [Suspect]
     Active Substance: HUMAN IMMUNOGLOBULIN G

REACTIONS (14)
  - Pneumonia [Unknown]
  - Weight increased [Unknown]
  - COVID-19 [Unknown]
  - Nasopharyngitis [Unknown]
  - Giardiasis [Unknown]
  - Streptococcal infection [Unknown]
  - Sinusitis [Unknown]
  - Blood immunoglobulin M decreased [Unknown]
  - Blood immunoglobulin A decreased [Unknown]
  - Urinary tract infection [Unknown]
  - Fatigue [Not Recovered/Not Resolved]
  - Abdominal pain upper [Unknown]
  - Asthenia [Unknown]
  - Migraine [Unknown]

NARRATIVE: CASE EVENT DATE: 20200109
